FAERS Safety Report 8152099 (Version 2)
Quarter: 2013Q1

REPORT INFORMATION
  Report Type: Spontaneous
  Country: US (occurrence: US)
  Receive Date: 20110922
  Receipt Date: 20130218
  Transmission Date: 20140127
  Serious: Yes (Other)
  Sender: FDA-Public Use
  Company Number: US-ASTRAZENECA-2011SE12730

PATIENT
  Age: 59 Year
  Sex: Male

DRUGS (15)
  1. SEROQUEL [Suspect]
     Indication: SLEEP DISORDER
     Route: 048
     Dates: start: 20050701
  2. SEROQUEL [Suspect]
     Indication: AGITATION
     Route: 048
     Dates: start: 20050701
  3. CYCLOBENZAPRINE HCL/FLEXERIL [Concomitant]
     Route: 048
     Dates: start: 20050701
  4. DIAZEPAM [Concomitant]
     Route: 048
     Dates: start: 20050701
  5. DOCUSATE NA [Concomitant]
     Indication: CONSTIPATION
     Route: 048
     Dates: start: 20050701
  6. ETODOLAC [Concomitant]
     Route: 048
     Dates: start: 20050701
  7. FEXOFENADINE HCL [Concomitant]
     Indication: MULTIPLE ALLERGIES
     Route: 048
     Dates: start: 20050701
  8. FLUOXETINE HCL [Concomitant]
     Indication: MOOD ALTERED
     Route: 048
     Dates: start: 20050701
  9. HYDROCHLOROTHIAZIDE [Concomitant]
     Route: 048
     Dates: start: 20050701
  10. HYDROCODONE/ACETAMINOPHEN [Concomitant]
     Dosage: 10/500 MG THREE TIMES A DAY
     Route: 048
     Dates: start: 20050701
  11. LISINOPRIL [Concomitant]
     Route: 048
     Dates: start: 20050701
  12. LORATADINE [Concomitant]
     Indication: MULTIPLE ALLERGIES
     Route: 048
     Dates: start: 20050701
  13. OMEPRAZOLE [Concomitant]
     Indication: GASTRIC PH DECREASED
     Route: 048
     Dates: start: 20050701
  14. OXYBUTYNIN CHLORIDE [Concomitant]
     Route: 048
     Dates: start: 20050701
  15. SILDENAFIL CITRATE [Concomitant]
     Indication: SEXUAL DYSFUNCTION
     Route: 048
     Dates: start: 20050701

REACTIONS (3)
  - Pancreatitis [Unknown]
  - Diabetic coma [Unknown]
  - Type 2 diabetes mellitus [Unknown]
